FAERS Safety Report 4869349-2 (Version None)
Quarter: 2005Q4

REPORT INFORMATION
  Report Type: 
  Country: None (occurrence: None)
  Receive Date: 20051228
  Receipt Date: 20051228
  Transmission Date: 20060501
  Serious: Yes (Hospitalization)
  Sender: FDA-Public Use
  Company Number: None

PATIENT
  Sex: Female
  Weight: 61.6 kg

DRUGS (3)
  1. CLOFARABINE GENZYME [Suspect]
     Indication: ACUTE LYMPHOCYTIC LEUKAEMIA
     Dosage: 20 MG/M2 D 1-3, 8-10 INTRAVENOUS DRIP
     Route: 041
     Dates: start: 20051206, end: 20051216
  2. CLOFARABINE GENZYME [Suspect]
     Indication: B-CELL TYPE ACUTE LEUKAEMIA
     Dosage: 20 MG/M2 D 1-3, 8-10 INTRAVENOUS DRIP
     Route: 041
     Dates: start: 20051206, end: 20051216
  3. CYCLOPHOSPHAMIDE [Suspect]
     Dosage: 200 MG /M2 THEN 400 MG/M2 D 0-1,2-3, 8-10 INTRAVENOUS DRIP
     Route: 041
     Dates: start: 20051205, end: 20051216

REACTIONS (6)
  - ABDOMINAL PAIN [None]
  - BLOOD BILIRUBIN INCREASED [None]
  - COMPLICATIONS OF BONE MARROW TRANSPLANT [None]
  - DIARRHOEA [None]
  - PANCREATITIS [None]
  - VENOOCCLUSIVE DISEASE [None]
